FAERS Safety Report 9110237 (Version 2)
Quarter: 2013Q1

REPORT INFORMATION
  Report Type: Spontaneous
  Country: JP (occurrence: JP)
  Receive Date: 20130222
  Receipt Date: 20130315
  Transmission Date: 20140127
  Serious: Yes (Other)
  Sender: FDA-Public Use
  Company Number: JP-JNJFOC-20130206454

PATIENT
  Age: 84 Year
  Sex: Female

DRUGS (3)
  1. DUROTEP MT [Suspect]
     Indication: PAIN
     Route: 062
     Dates: start: 20130121, end: 20130203
  2. DUROTEP MT [Suspect]
     Indication: PAIN
     Route: 062
     Dates: start: 201208, end: 20130121
  3. OXINORM (OXYCODONE HYDROCHLORIDE) [Concomitant]
     Indication: PAIN
     Route: 048
     Dates: start: 20130121, end: 20130203

REACTIONS (3)
  - Suicide attempt [Recovered/Resolved]
  - Withdrawal syndrome [Recovered/Resolved]
  - Pyrexia [Recovered/Resolved]
